FAERS Safety Report 17040712 (Version 3)
Quarter: 2020Q1

REPORT INFORMATION
  Report Type: Spontaneous
  Country: JP (occurrence: JP)
  Receive Date: 20191117
  Receipt Date: 20200212
  Transmission Date: 20200409
  Serious: Yes (Hospitalization, Other)
  Sender: FDA-Public Use
  Company Number: NVSC2019JP027039

PATIENT
  Age: 85 Year
  Sex: Female
  Weight: 49.5 kg

DRUGS (2)
  1. RIVASTACH [Suspect]
     Active Substance: RIVASTIGMINE
     Indication: DEMENTIA ALZHEIMER^S TYPE
     Dosage: 6.9 MG, QD
     Route: 062
  2. RIVASTACH [Suspect]
     Active Substance: RIVASTIGMINE
     Dosage: 94.5 UNK
     Route: 062
     Dates: start: 20190910, end: 20190911

REACTIONS (6)
  - Overdose [Unknown]
  - Dizziness [Recovering/Resolving]
  - Depressed level of consciousness [Recovered/Resolved]
  - Delirium [Unknown]
  - Vomiting [Recovering/Resolving]
  - Wrong technique in product usage process [Unknown]

NARRATIVE: CASE EVENT DATE: 201909
